FAERS Safety Report 7329960-6 (Version None)
Quarter: 2011Q1

REPORT INFORMATION
  Report Type: 
  Country: None (occurrence: None)
  Receive Date: 20110303
  Receipt Date: 20110214
  Transmission Date: 20110831
  Serious: Yes (Hospitalization, Other)
  Sender: FDA-Public Use
  Company Number: US-BAYER-2010-002113

PATIENT
  Sex: Female

DRUGS (13)
  1. YASMIN [Suspect]
     Indication: MENSTRUATION IRREGULAR
     Dosage: UNK
     Route: 048
     Dates: end: 20031201
  2. NEXIUM [Concomitant]
     Indication: PRODUCT USED FOR UNKNOWN INDICATION
  3. RANITIDINE [Concomitant]
     Dosage: 150 MG, UNK
     Dates: start: 20031201
  4. ZANTAC [Concomitant]
     Indication: URTICARIA
     Dosage: 150 MG, BID
     Route: 048
     Dates: start: 20031201
  5. MULTI-VITAMIN [Concomitant]
     Indication: PRODUCT USED FOR UNKNOWN INDICATION
  6. CHROMIUM CHLORIDE [Concomitant]
     Indication: PRODUCT USED FOR UNKNOWN INDICATION
  7. ALLEGRA [Concomitant]
     Indication: URTICARIA
     Dosage: 180 MG, UNK
     Route: 048
     Dates: start: 20030101, end: 20031201
  8. UNCODEABLE ^UNCLASSIFIABLE^ [Concomitant]
     Dosage: UNK
     Dates: start: 20031201
  9. YAZ [Suspect]
     Indication: MENSTRUATION IRREGULAR
     Dosage: UNK
     Route: 048
     Dates: end: 20031201
  10. PREDNISONE [Concomitant]
     Indication: URTICARIA
     Dosage: 10 MG, UNK
     Route: 048
     Dates: start: 20031201
  11. ZYRTEC [Concomitant]
     Indication: URTICARIA
     Dosage: UNK
     Dates: start: 20031201
  12. STEROID ANTIBACTERIALS [Concomitant]
     Indication: URTICARIA
  13. BENADRYL [Concomitant]
     Indication: URTICARIA
     Dosage: UNK
     Dates: start: 20030101

REACTIONS (6)
  - HEADACHE [None]
  - LIP SWELLING [None]
  - PULMONARY EMBOLISM [None]
  - PAIN [None]
  - INJURY [None]
  - PLEURITIC PAIN [None]
